FAERS Safety Report 13412628 (Version 1)
Quarter: 2017Q2

REPORT INFORMATION
  Report Type: Spontaneous
  Country: US (occurrence: US)
  Receive Date: 20170406
  Receipt Date: 20170406
  Transmission Date: 20170830
  Serious: No
  Sender: FDA-Public Use
  Company Number: None

PATIENT
  Age: 30 Year
  Sex: Female
  Weight: 65.25 kg

DRUGS (4)
  1. SYNTHROID [Concomitant]
     Active Substance: LEVOTHYROXINE SODIUM
  2. VENTOLIN HFA [Suspect]
     Active Substance: ALBUTEROL SULFATE
     Indication: ASTHMA EXERCISE INDUCED
     Dosage: ?          OTHER STRENGTH:MCG PER ACTUATION;QUANTITY:200 INHALATION(S);?
     Route: 055
     Dates: start: 20170101, end: 20170201
  3. ALLEGRA [Concomitant]
     Active Substance: FEXOFENADINE HYDROCHLORIDE
  4. CINGULAIR [Concomitant]

REACTIONS (2)
  - Product quality issue [None]
  - Chest discomfort [None]

NARRATIVE: CASE EVENT DATE: 20170102
